FAERS Safety Report 13782184 (Version 1)
Quarter: 2017Q3

REPORT INFORMATION
  Report Type: Spontaneous
  Country: US (occurrence: US)
  Receive Date: 20170724
  Receipt Date: 20170724
  Transmission Date: 20171127
  Serious: No
  Sender: FDA-Public Use
  Company Number: None

PATIENT
  Age: 64 Year
  Sex: Male
  Weight: 83.25 kg

DRUGS (2)
  1. RABEPRAZOLE 20MG [Suspect]
     Active Substance: RABEPRAZOLE
     Indication: GASTROOESOPHAGEAL REFLUX DISEASE
     Dosage: ?          OTHER STRENGTH:MG;QUANTITY:90 TABLET(S);?
     Route: 048
     Dates: start: 20170101, end: 20170618
  2. PROPRANOLOL [Concomitant]
     Active Substance: PROPRANOLOL HYDROCHLORIDE

REACTIONS (15)
  - Asthenia [None]
  - Diarrhoea [None]
  - Flatulence [None]
  - Disease recurrence [None]
  - Muscle spasms [None]
  - Impaired work ability [None]
  - Therapy cessation [None]
  - Condition aggravated [None]
  - Fatigue [None]
  - Headache [None]
  - Arthralgia [None]
  - Abdominal distension [None]
  - Gastrooesophageal reflux disease [None]
  - Myalgia [None]
  - Depression [None]

NARRATIVE: CASE EVENT DATE: 20170618
